FAERS Safety Report 17796885 (Version 2)
Quarter: 2022Q1

REPORT INFORMATION
  Report Type: Spontaneous
  Country: GB (occurrence: GB)
  Receive Date: 20200518
  Receipt Date: 20220211
  Transmission Date: 20220423
  Serious: Yes (Death, Hospitalization, Other)
  Sender: FDA-Public Use
  Company Number: GB-AUROBINDO-08-AUR-05010

PATIENT
  Age: 81 Year
  Sex: Male

DRUGS (10)
  1. SIMVASTATIN [Interacting]
     Active Substance: SIMVASTATIN
     Indication: Blood cholesterol increased
     Dosage: 40 MILLIGRAM
     Route: 048
     Dates: start: 20080714, end: 20080814
  2. FUSIDIC ACID [Interacting]
     Active Substance: FUSIDIC ACID
     Indication: Osteomyelitis
     Dosage: 500 MILLIGRAM, 3 TIMES A DAY
     Route: 048
     Dates: end: 20080814
  3. FUSIDIC ACID [Interacting]
     Active Substance: FUSIDIC ACID
     Indication: Diabetic foot
  4. ASPIRIN [Concomitant]
     Active Substance: ASPIRIN
     Indication: Product used for unknown indication
     Dosage: 75 MILLIGRAM, ONCE A DAY
     Route: 065
  5. FLUCLOXACILLIN [Concomitant]
     Active Substance: FLUCLOXACILLIN
     Indication: Diabetic foot
     Dosage: 400 MILLIGRAM, FOUR TIMES/DAY
     Route: 065
  6. FLUCLOXACILLIN [Concomitant]
     Active Substance: FLUCLOXACILLIN
     Indication: Osteomyelitis
  7. GLICLAZIDE [Concomitant]
     Active Substance: GLICLAZIDE
     Indication: Product used for unknown indication
     Dosage: 30 MILLIGRAM, ONCE A DAY
     Route: 065
  8. LACIDIPINE [Concomitant]
     Active Substance: LACIDIPINE
     Indication: Product used for unknown indication
     Dosage: 2 MILLIGRAM, ONCE A DAY
     Route: 065
  9. METFORMIN [Concomitant]
     Active Substance: METFORMIN HYDROCHLORIDE
     Indication: Product used for unknown indication
     Dosage: 850 MILLIGRAM, 3 TIMES A DAY
     Route: 065
  10. RAMIPRIL [Concomitant]
     Active Substance: RAMIPRIL
     Indication: Product used for unknown indication
     Dosage: 10 MILLIGRAM, ONCE A DAY
     Route: 065

REACTIONS (6)
  - Rhabdomyolysis [Fatal]
  - Acute kidney injury [Fatal]
  - Gait inability [Fatal]
  - Blood creatine phosphokinase increased [Fatal]
  - Malaise [Fatal]
  - Drug interaction [Fatal]
